FAERS Safety Report 15497766 (Version 2)
Quarter: 2021Q3

REPORT INFORMATION
  Report Type: Spontaneous
  Country: US (occurrence: US)
  Receive Date: 20181015
  Receipt Date: 20210917
  Transmission Date: 20211014
  Serious: No
  Sender: FDA-Public Use
  Company Number: US-BIOGEN-2018BI00636737

PATIENT
  Sex: Female

DRUGS (73)
  1. NASACORT ALLERGY 24HR [Concomitant]
     Active Substance: TRIAMCINOLONE ACETONIDE
     Indication: PRODUCT USED FOR UNKNOWN INDICATION
     Route: 050
  2. VITAMIN D3 [Concomitant]
     Active Substance: CHOLECALCIFEROL
     Route: 050
  3. VITAMIN D3 [Concomitant]
     Active Substance: CHOLECALCIFEROL
     Route: 050
  4. LUTEIN [Concomitant]
     Active Substance: LUTEIN
     Route: 050
  5. LUTEIN [Concomitant]
     Active Substance: LUTEIN
     Route: 050
  6. LORATADINE. [Concomitant]
     Active Substance: LORATADINE
     Route: 050
  7. GABAPENTIN. [Concomitant]
     Active Substance: GABAPENTIN
     Route: 050
  8. MULTIVITAMIN [Concomitant]
     Active Substance: VITAMINS
     Route: 050
  9. ACETAMINOPHEN AND HYDROCODONE [Concomitant]
     Active Substance: ACETAMINOPHEN\HYDROCODONE
     Route: 050
  10. PROVIGIL [Concomitant]
     Active Substance: MODAFINIL
     Indication: PRODUCT USED FOR UNKNOWN INDICATION
     Route: 050
  11. NASACORT ALLERGY 24HR [Concomitant]
     Active Substance: TRIAMCINOLONE ACETONIDE
     Route: 050
  12. NASACORT ALLERGY 24HR [Concomitant]
     Active Substance: TRIAMCINOLONE ACETONIDE
     Route: 050
  13. NASACORT ALLERGY 24HR [Concomitant]
     Active Substance: TRIAMCINOLONE ACETONIDE
     Route: 050
  14. ROBITUSSIN COLD COUGH CHEST [Concomitant]
     Route: 050
  15. VITAMIN D3 [Concomitant]
     Active Substance: CHOLECALCIFEROL
     Route: 050
  16. GABAPENTIN. [Concomitant]
     Active Substance: GABAPENTIN
     Indication: PRODUCT USED FOR UNKNOWN INDICATION
     Route: 050
  17. GABAPENTIN. [Concomitant]
     Active Substance: GABAPENTIN
     Route: 050
  18. MUCINEX [Concomitant]
     Active Substance: GUAIFENESIN
     Indication: PRODUCT USED FOR UNKNOWN INDICATION
     Route: 050
  19. MUCINEX [Concomitant]
     Active Substance: GUAIFENESIN
     Route: 050
  20. AMPYRA [Concomitant]
     Active Substance: DALFAMPRIDINE
     Indication: MULTIPLE SCLEROSIS
     Route: 050
  21. TYLENOL [Concomitant]
     Active Substance: ACETAMINOPHEN
     Route: 050
  22. TYLENOL [Concomitant]
     Active Substance: ACETAMINOPHEN
     Route: 050
  23. ASPIRIN. [Concomitant]
     Active Substance: ASPIRIN
     Route: 050
  24. ALBUTEROL SULFATE. [Concomitant]
     Active Substance: ALBUTEROL SULFATE
     Route: 050
  25. VITAMIN D3 [Concomitant]
     Active Substance: CHOLECALCIFEROL
     Indication: PRODUCT USED FOR UNKNOWN INDICATION
     Route: 050
  26. LORATADINE. [Concomitant]
     Active Substance: LORATADINE
     Indication: PRODUCT USED FOR UNKNOWN INDICATION
     Route: 050
  27. LORATADINE. [Concomitant]
     Active Substance: LORATADINE
     Route: 050
  28. HYDROCODONE?ACETAMINOPHEN [Concomitant]
     Active Substance: ACETAMINOPHEN\HYDROCODONE
     Route: 050
  29. MELOXICAM. [Concomitant]
     Active Substance: MELOXICAM
     Indication: PRODUCT USED FOR UNKNOWN INDICATION
     Route: 050
  30. ZITHROMAX [Concomitant]
     Active Substance: AZITHROMYCIN DIHYDRATE
     Route: 050
  31. ACETAMINOPHEN AND HYDROCODONE [Concomitant]
     Active Substance: ACETAMINOPHEN\HYDROCODONE
     Route: 050
  32. ACETAMINOPHEN AND HYDROCODONE [Concomitant]
     Active Substance: ACETAMINOPHEN\HYDROCODONE
     Route: 050
  33. AMPYRA [Concomitant]
     Active Substance: DALFAMPRIDINE
     Route: 050
  34. ROBITUSSIN COLD COUGH CHEST [Concomitant]
     Route: 050
  35. MELOXICAM. [Concomitant]
     Active Substance: MELOXICAM
     Route: 050
  36. ZITHROMAX [Concomitant]
     Active Substance: AZITHROMYCIN DIHYDRATE
     Route: 050
  37. AVONEX PEN [Suspect]
     Active Substance: INTERFERON BETA-1A
     Indication: MULTIPLE SCLEROSIS
     Route: 050
     Dates: start: 20120223
  38. AVONEX PEN [Suspect]
     Active Substance: INTERFERON BETA-1A
  39. AMPYRA [Concomitant]
     Active Substance: DALFAMPRIDINE
     Route: 050
  40. TYLENOL [Concomitant]
     Active Substance: ACETAMINOPHEN
     Route: 050
  41. PROVIGIL [Concomitant]
     Active Substance: MODAFINIL
     Route: 050
  42. ASPIRIN. [Concomitant]
     Active Substance: ASPIRIN
     Indication: PRODUCT USED FOR UNKNOWN INDICATION
     Route: 050
  43. ROBITUSSIN COLD COUGH CHEST [Concomitant]
     Route: 050
  44. ALBUTEROL SULFATE. [Concomitant]
     Active Substance: ALBUTEROL SULFATE
     Route: 050
  45. ALBUTEROL SULFATE. [Concomitant]
     Active Substance: ALBUTEROL SULFATE
     Route: 050
  46. HYDROCODONE?ACETAMINOPHEN [Concomitant]
     Active Substance: ACETAMINOPHEN\HYDROCODONE
     Route: 050
  47. MUCINEX [Concomitant]
     Active Substance: GUAIFENESIN
     Route: 050
  48. MULTIVITAMIN [Concomitant]
     Active Substance: VITAMINS
     Indication: PRODUCT USED FOR UNKNOWN INDICATION
     Route: 050
  49. AMPYRA [Concomitant]
     Active Substance: DALFAMPRIDINE
     Route: 050
  50. ASPIRIN. [Concomitant]
     Active Substance: ASPIRIN
     Route: 050
  51. MULTIVITAMIN [Concomitant]
     Active Substance: VITAMINS
     Route: 050
  52. ACETAMINOPHEN AND HYDROCODONE [Concomitant]
     Active Substance: ACETAMINOPHEN\HYDROCODONE
     Indication: PRODUCT USED FOR UNKNOWN INDICATION
     Route: 050
  53. AVONEX PEN [Suspect]
     Active Substance: INTERFERON BETA-1A
  54. TYLENOL [Concomitant]
     Active Substance: ACETAMINOPHEN
     Indication: PRODUCT USED FOR UNKNOWN INDICATION
     Route: 050
  55. PROVIGIL [Concomitant]
     Active Substance: MODAFINIL
     Route: 050
  56. PROVIGIL [Concomitant]
     Active Substance: MODAFINIL
     Route: 050
  57. ALBUTEROL SULFATE. [Concomitant]
     Active Substance: ALBUTEROL SULFATE
     Indication: PRODUCT USED FOR UNKNOWN INDICATION
     Route: 050
  58. LUTEIN [Concomitant]
     Active Substance: LUTEIN
     Indication: PRODUCT USED FOR UNKNOWN INDICATION
     Route: 050
  59. LUTEIN [Concomitant]
     Active Substance: LUTEIN
     Route: 050
  60. GABAPENTIN. [Concomitant]
     Active Substance: GABAPENTIN
     Route: 050
  61. MELOXICAM. [Concomitant]
     Active Substance: MELOXICAM
     Route: 050
  62. AVONEX PEN [Suspect]
     Active Substance: INTERFERON BETA-1A
  63. AMPYRA [Concomitant]
     Active Substance: DALFAMPRIDINE
     Route: 050
  64. ASPIRIN. [Concomitant]
     Active Substance: ASPIRIN
     Route: 050
  65. ROBITUSSIN COLD COUGH CHEST [Concomitant]
     Indication: PRODUCT USED FOR UNKNOWN INDICATION
     Route: 050
  66. LORATADINE. [Concomitant]
     Active Substance: LORATADINE
     Route: 050
  67. HYDROCODONE?ACETAMINOPHEN [Concomitant]
     Active Substance: ACETAMINOPHEN\HYDROCODONE
     Indication: PRODUCT USED FOR UNKNOWN INDICATION
     Route: 050
  68. HYDROCODONE?ACETAMINOPHEN [Concomitant]
     Active Substance: ACETAMINOPHEN\HYDROCODONE
     Route: 050
  69. MELOXICAM. [Concomitant]
     Active Substance: MELOXICAM
     Route: 050
  70. MUCINEX [Concomitant]
     Active Substance: GUAIFENESIN
     Route: 050
  71. MULTIVITAMIN [Concomitant]
     Active Substance: VITAMINS
     Route: 050
  72. ZITHROMAX [Concomitant]
     Active Substance: AZITHROMYCIN DIHYDRATE
     Indication: PRODUCT USED FOR UNKNOWN INDICATION
     Route: 050
  73. ZITHROMAX [Concomitant]
     Active Substance: AZITHROMYCIN DIHYDRATE
     Route: 050

REACTIONS (1)
  - Skin lesion [Unknown]
